FAERS Safety Report 6522830-2 (Version None)
Quarter: 2009Q4

REPORT INFORMATION
  Report Type: 
  Country: None (occurrence: None)
  Receive Date: 20091230
  Receipt Date: 20091119
  Transmission Date: 20100525
  Serious: No
  Sender: FDA-Public Use
  Company Number: US-BAYER-200942012NA

PATIENT
  Age: 33 Year
  Sex: Female
  Weight: 59 kg

DRUGS (1)
  1. ULTRAVIST 240 [Suspect]
     Indication: UROGRAM
     Dosage: TOTAL DAILY DOSE: 200 ML  UNIT DOSE: 200 ML
     Route: 042
     Dates: start: 20091119, end: 20091119

REACTIONS (5)
  - HYPOAESTHESIA FACIAL [None]
  - HYPOAESTHESIA ORAL [None]
  - NASAL CONGESTION [None]
  - RESPIRATORY TRACT CONGESTION [None]
  - SNEEZING [None]
